FAERS Safety Report 9204614 (Version 1)
Quarter: 2013Q1

REPORT INFORMATION
  Report Type: Spontaneous
  Country: US (occurrence: None)
  Receive Date: 20120709
  Receipt Date: 20120709
  Transmission Date: 20140127
  Serious: No
  Sender: FDA-Public Use
  Company Number: 2012HGS-003490

PATIENT
  Age: 42 Year
  Sex: Female
  Weight: 111.13 kg

DRUGS (8)
  1. BENLYSTA [Suspect]
     Indication: SYSTEMIC LUPUS ERYTHEMATOSUS
     Dosage: 1 IN 14 D
     Route: 041
     Dates: start: 20120409
  2. BYETTA (EXENATIDE) - (EXENATIDE) [Concomitant]
  3. LEVOTHYROXINE (LEVOTHYROXINE) (LEVOTHYROXINE) [Concomitant]
  4. AZATHIOPRINE (AZATHIOPRINE) (AZATHIOPRINE) [Concomitant]
  5. INSULIN (INSULIN) (INSULIN) [Concomitant]
  6. METOPROLOL (METOPROLOL) (METOPROLOL) [Concomitant]
  7. LEXAPRO (ESCITALOPRAM OXALATE) (ESCITALOPRAM OXALATE) [Concomitant]
  8. MELOXICAM (MELOXICAM) (MELOXICAM) [Concomitant]

REACTIONS (4)
  - Fatigue [None]
  - Infusion related reaction [None]
  - Nausea [None]
  - Headache [None]
